FAERS Safety Report 15653828 (Version 1)
Quarter: 2018Q4

REPORT INFORMATION
  Report Type: Spontaneous
  Country: US (occurrence: US)
  Receive Date: 20181123
  Receipt Date: 20181123
  Transmission Date: 20190205
  Serious: Yes (Hospitalization)
  Sender: FDA-Public Use
  Company Number: None

PATIENT
  Age: 55 Year
  Sex: Male

DRUGS (11)
  1. SODIUM CHLORIDE. [Concomitant]
     Active Substance: SODIUM CHLORIDE
  2. ATOVAQUONE. [Concomitant]
     Active Substance: ATOVAQUONE
  3. PANTOPRAZOLE [Concomitant]
     Active Substance: PANTOPRAZOLE
  4. TACROLIMUS. [Concomitant]
     Active Substance: TACROLIMUS
  5. DECARA [Concomitant]
  6. NOXAFIL [Concomitant]
     Active Substance: POSACONAZOLE
  7. URSODIOL. [Concomitant]
     Active Substance: URSODIOL
  8. SPRYCEL [Suspect]
     Active Substance: DASATINIB
     Indication: NEOPLASM MALIGNANT
     Route: 048
     Dates: start: 20180406
  9. ACYCLOVIR. [Concomitant]
     Active Substance: ACYCLOVIR
  10. MAGNESIUM OXIDE. [Concomitant]
     Active Substance: MAGNESIUM OXIDE
  11. FOLIC ACID. [Concomitant]
     Active Substance: FOLIC ACID

REACTIONS (1)
  - Pulmonary oedema [None]

NARRATIVE: CASE EVENT DATE: 20181109
